FAERS Safety Report 4491375-6 (Version None)
Quarter: 2004Q4

REPORT INFORMATION
  Report Type: 
  Country: None (occurrence: None)
  Receive Date: 20041029
  Receipt Date: 20041025
  Transmission Date: 20050328
  Serious: Yes (Death)
  Sender: FDA-Public Use
  Company Number: USA-2004-0017006

PATIENT
  Age: 52 Year
  Sex: Female
  Weight: 92.5 kg

DRUGS (6)
  1. MORPHINE SULFATE [Suspect]
     Dosage: MG
  2. HYDROCODONE (HYDROCODONE) [Suspect]
     Dosage: MG
  3. DIPHENHYDRAMINE HCL [Suspect]
  4. CITALOPRAM [Suspect]
  5. TEMAZEPAM [Suspect]
  6. ACETAMINOPHEN [Suspect]

REACTIONS (14)
  - BLOOD BICARBONATE DECREASED [None]
  - BLOOD GLUCOSE DECREASED [None]
  - BLOOD POTASSIUM INCREASED [None]
  - COMA [None]
  - CONTUSION [None]
  - CONVULSION [None]
  - ECCHYMOSIS [None]
  - EXCORIATION [None]
  - HALLUCINATION [None]
  - HEPATIC STEATOSIS [None]
  - MULTIPLE DRUG OVERDOSE ACCIDENTAL [None]
  - MUSCLE RIGIDITY [None]
  - SELF-MEDICATION [None]
  - SKIN BLEEDING [None]
